FAERS Safety Report 23701870 (Version 1)
Quarter: 2024Q2

REPORT INFORMATION
  Report Type: Spontaneous
  Country: US (occurrence: None)
  Receive Date: 20240402
  Receipt Date: 20240402
  Transmission Date: 20240715
  Serious: No
  Sender: FDA-Public Use
  Company Number: None

PATIENT
  Age: 86 Year
  Sex: Male

DRUGS (1)
  1. MEKINIST [Suspect]
     Active Substance: TRAMETINIB DIMETHYL SULFOXIDE
     Indication: Prostate cancer
     Dosage: FREQUENCY : DAILY;?

REACTIONS (4)
  - Wrong technique in product usage process [None]
  - Diarrhoea [None]
  - Fatigue [None]
  - Dyspnoea [None]
